FAERS Safety Report 12168099 (Version 5)
Quarter: 2016Q3

REPORT INFORMATION
  Report Type: Spontaneous
  Country: US (occurrence: US)
  Receive Date: 20160310
  Receipt Date: 20160829
  Transmission Date: 20161109
  Serious: Yes (Other)
  Sender: FDA-Public Use
  Company Number: US-PFIZER INC-2016129720

PATIENT
  Age: 46 Year
  Sex: Female

DRUGS (2)
  1. IBRANCE [Suspect]
     Active Substance: PALBOCICLIB
     Indication: BREAST CANCER METASTATIC
     Dosage: 75 MG, CYCLIC (2 ON AND 2 OFF)
     Route: 048
     Dates: start: 20150813
  2. LETROZOLE. [Concomitant]
     Active Substance: LETROZOLE
     Indication: BREAST CANCER METASTATIC
     Dosage: UNK
     Dates: start: 20150813

REACTIONS (5)
  - Cough [Recovering/Resolving]
  - Headache [Unknown]
  - White blood cell count abnormal [Recovering/Resolving]
  - Fatigue [Unknown]
  - Neutropenia [Unknown]
